FAERS Safety Report 7090953-8 (Version None)
Quarter: 2010Q4

REPORT INFORMATION
  Report Type: 
  Country: None (occurrence: None)
  Receive Date: 20101109
  Receipt Date: 20101025
  Transmission Date: 20110411
  Serious: Yes (Hospitalization)
  Sender: FDA-Public Use
  Company Number: US-ASTRAZENECA-2010SE34772

PATIENT
  Age: 27443 Day
  Sex: Male
  Weight: 72.6 kg

DRUGS (7)
  1. SEROQUEL [Suspect]
     Indication: BIPOLAR DISORDER
     Route: 048
  2. LITHIUM [Concomitant]
  3. CARBAMAZEPINE [Concomitant]
  4. GLIPIZIDE [Concomitant]
  5. FENOFIBRATE [Concomitant]
  6. ASPIRIN [Concomitant]
  7. PLAVIX [Concomitant]

REACTIONS (4)
  - ANAEMIA [None]
  - CARDIAC OPERATION [None]
  - CHEST PAIN [None]
  - MANIA [None]
